FAERS Safety Report 8153541-8 (Version None)
Quarter: 2012Q1

REPORT INFORMATION
  Report Type: 
  Country: None (occurrence: None)
  Receive Date: 20120221
  Receipt Date: 20120207
  Transmission Date: 20120608
  Serious: Yes (Hospitalization)
  Sender: FDA-Public Use
  Company Number: JP-JHP PHARMACEUTICALS, LLC-JHP201200107

PATIENT
  Age: 34 Year
  Sex: Female

DRUGS (5)
  1. DANTRIUM [Suspect]
     Indication: NEUROLEPTIC MALIGNANT SYNDROME
     Dosage: 20 MG, BID
     Route: 042
     Dates: start: 20111230, end: 20120107
  2. CEFOPERAZONE SODIUM [Concomitant]
     Indication: NEUROLEPTIC MALIGNANT SYNDROME
     Dosage: UNK
     Dates: start: 20111230, end: 20120106
  3. RISPERDAL [Concomitant]
     Dosage: 20 MG, BID
     Route: 042
  4. DANTRIUM [Suspect]
     Dosage: UNK
     Route: 048
     Dates: start: 20120107, end: 20120108
  5. DANTRIUM [Suspect]
     Dosage: 20 MG, BID
     Route: 042
     Dates: start: 20120108, end: 20120109

REACTIONS (2)
  - DRUG INEFFECTIVE [None]
  - PYREXIA [None]
